FAERS Safety Report 23899762 (Version 4)
Quarter: 2024Q3

REPORT INFORMATION
  Report Type: Spontaneous
  Country: US (occurrence: US)
  Receive Date: 20240526
  Receipt Date: 20240709
  Transmission Date: 20241016
  Serious: No
  Sender: NOVARTIS
  Company Number: US-002147023-NVSC2024US110421

PATIENT
  Age: 77 Year
  Sex: Male

DRUGS (1)
  1. PLUVICTO [Suspect]
     Active Substance: LUTETIUM LU-177 VIPIVOTIDE TETRAXETAN
     Indication: Hormone-refractory prostate cancer
     Dosage: UNK, (Q6W)
     Route: 042
     Dates: start: 20240313

REACTIONS (2)
  - Ill-defined disorder [Unknown]
  - Laboratory test abnormal [Not Recovered/Not Resolved]
